FAERS Safety Report 6669360-5 (Version None)
Quarter: 2010Q2

REPORT INFORMATION
  Report Type: 
  Country: None (occurrence: None)
  Receive Date: 20100406
  Receipt Date: 20100405
  Transmission Date: 20101027
  Serious: Yes (Hospitalization, Other)
  Sender: FDA-Public Use
  Company Number: A0851815A

PATIENT
  Age: 36 Year
  Sex: Female

DRUGS (5)
  1. LAMICTAL CD [Suspect]
     Indication: BIPOLAR DISORDER
     Dosage: 25MG PER DAY
     Route: 048
     Dates: start: 20100223, end: 20100318
  2. TOPAMAX [Concomitant]
     Dosage: 100MG TWICE PER DAY
     Route: 048
  3. FLUOXETINE [Concomitant]
     Dosage: 40MG PER DAY
     Route: 048
  4. LORAZEPAM [Concomitant]
     Route: 048
  5. AMBIEN [Concomitant]
     Dosage: 10MG AT NIGHT
     Route: 048

REACTIONS (2)
  - RASH [None]
  - TONGUE DISORDER [None]
